FAERS Safety Report 4509070-3 (Version None)
Quarter: 2004Q4

REPORT INFORMATION
  Report Type: 
  Country: None (occurrence: None)
  Receive Date: 20041025
  Receipt Date: 20031223
  Transmission Date: 20050328
  Serious: Yes (Hospitalization, Other)
  Sender: FDA-Public Use
  Company Number: US-JNJFOC-20030904516

PATIENT
  Age: 52 Year
  Sex: Female
  Weight: 74 kg

DRUGS (8)
  1. REMICADE [Suspect]
     Indication: RHEUMATOID ARTHRITIS
     Dosage: 400 MG, 1 IN 1 DAY, INTRAVENOUS
     Route: 042
     Dates: start: 20030627, end: 20030627
  2. REMICADE [Suspect]
     Indication: RHEUMATOID ARTHRITIS
     Dosage: 400 MG, 1 IN 1 DAY, INTRAVENOUS
     Route: 042
     Dates: start: 20030711, end: 20030711
  3. REMICADE [Suspect]
     Indication: RHEUMATOID ARTHRITIS
     Dosage: 400 MG, 1 IN 1 DAY, INTRAVENOUS
     Route: 042
     Dates: start: 20030808, end: 20030808
  4. REMICADE [Suspect]
     Indication: RHEUMATOID ARTHRITIS
     Dosage: 400 MG, 1 IN 1 DAY, INTRAVENOUS
     Route: 042
     Dates: start: 20030918
  5. MTX (METHOTREXATE SODIUM) TABLETS [Concomitant]
  6. PREDNISONE [Concomitant]
  7. BENADRYL [Concomitant]
  8. TYLENOL [Concomitant]

REACTIONS (5)
  - BLOOD PRESSURE FLUCTUATION [None]
  - CHEST DISCOMFORT [None]
  - DYSPNOEA [None]
  - FLUSHING [None]
  - INFUSION RELATED REACTION [None]
